FAERS Safety Report 24884632 (Version 1)
Quarter: 2025Q1

REPORT INFORMATION
  Report Type: Spontaneous
  Country: US (occurrence: US)
  Receive Date: 20250124
  Receipt Date: 20250124
  Transmission Date: 20250408
  Serious: No
  Sender: SANOFI AVENTIS
  Company Number: US-SA-2025SA020284

PATIENT
  Age: 2 Year
  Sex: Female

DRUGS (3)
  1. DUPIXENT [Suspect]
     Active Substance: DUPILUMAB
     Indication: Dermatitis atopic
     Dosage: 200 MG, Q4W
     Route: 058
  2. ZYRTEC [Concomitant]
     Active Substance: CETIRIZINE HYDROCHLORIDE
  3. EPIPEN [Concomitant]
     Active Substance: EPINEPHRINE

REACTIONS (9)
  - Dry skin [Unknown]
  - Food allergy [Unknown]
  - Sensitivity to weather change [Unknown]
  - Pruritus [Recovered/Resolved]
  - Ocular hyperaemia [Unknown]
  - Hypersensitivity [Unknown]
  - Eczema [Unknown]
  - Rash [Unknown]
  - Injection site bruising [Unknown]
